FAERS Safety Report 7025744-7 (Version None)
Quarter: 2010Q4

REPORT INFORMATION
  Report Type: 
  Country: None (occurrence: None)
  Receive Date: 20101004
  Receipt Date: 20100924
  Transmission Date: 20110411
  Serious: Yes (Hospitalization)
  Sender: FDA-Public Use
  Company Number: US-BIOGENIDEC-2009BI007716

PATIENT
  Age: 57 Year
  Sex: Female

DRUGS (2)
  1. AVONEX [Suspect]
     Indication: MULTIPLE SCLEROSIS
     Route: 030
     Dates: start: 19960412
  2. ANTISEIZURE MEDICATIONS (NOS) [Concomitant]
     Indication: CONVULSION

REACTIONS (10)
  - CONVULSION [None]
  - DECUBITUS ULCER [None]
  - DEMENTIA [None]
  - FALL [None]
  - INFLUENZA LIKE ILLNESS [None]
  - LOWER LIMB FRACTURE [None]
  - POOR PERIPHERAL CIRCULATION [None]
  - URINARY TRACT INFECTION [None]
  - WEIGHT DECREASED [None]
  - WOUND INFECTION BACTERIAL [None]
